FAERS Safety Report 11474368 (Version 1)
Quarter: 2015Q3

REPORT INFORMATION
  Report Type: Spontaneous
  Country: US (occurrence: None)
  Receive Date: 20150902
  Receipt Date: 20150902
  Transmission Date: 20151125
  Serious: Yes (Hospitalization)
  Sender: FDA-Public Use
  Company Number: A-US2014-105220

PATIENT
  Age: 29 Year
  Sex: Female
  Weight: 71.2 kg

DRUGS (1)
  1. VELETRI [Suspect]
     Active Substance: EPOPROSTENOL
     Indication: PULMONARY ARTERIAL HYPERTENSION
     Dosage: 40 NG/KG, PER MIN, INTRAVENOUS
     Route: 042
     Dates: start: 20101227

REACTIONS (6)
  - Pain in jaw [None]
  - Diarrhoea [None]
  - Headache [None]
  - Nausea [None]
  - Device damage [None]
  - Weight increased [None]
